FAERS Safety Report 11348105 (Version 1)
Quarter: 2015Q3

REPORT INFORMATION
  Report Type: Spontaneous
  Country: US (occurrence: US)
  Receive Date: 20150803
  Receipt Date: 20150803
  Transmission Date: 20151125
  Serious: No
  Sender: FDA-Public Use
  Company Number: US-ELI_LILLY_AND_COMPANY-US201202006319

PATIENT
  Age: 59 Year
  Sex: Female

DRUGS (2)
  1. STRATTERA [Suspect]
     Active Substance: ATOMOXETINE HYDROCHLORIDE
     Dosage: 10 MG, QD
     Dates: start: 20120215
  2. STRATTERA [Suspect]
     Active Substance: ATOMOXETINE HYDROCHLORIDE
     Indication: ATTENTION DEFICIT/HYPERACTIVITY DISORDER
     Dosage: 25 MG, QD

REACTIONS (8)
  - Hyperhidrosis [Unknown]
  - Sinus operation [Recovered/Resolved]
  - Asthenia [Unknown]
  - Chills [Unknown]
  - Sedation [Unknown]
  - Fatigue [Unknown]
  - Influenza like illness [Unknown]
  - Nausea [Unknown]
